FAERS Safety Report 16388946 (Version 1)
Quarter: 2019Q2

REPORT INFORMATION
  Report Type: Spontaneous
  Country: ES (occurrence: ES)
  Receive Date: 20190604
  Receipt Date: 20190604
  Transmission Date: 20190711
  Serious: Yes (Other)
  Sender: FDA-Public Use
  Company Number: ES-PFIZER INC-2019233457

PATIENT
  Age: 74 Year
  Sex: Female

DRUGS (2)
  1. SINTROM [Interacting]
     Active Substance: ACENOCOUMAROL
     Indication: ATRIAL FIBRILLATION
     Dosage: UNK (AS NEEDED)
     Route: 048
     Dates: start: 20180312, end: 20180403
  2. MEROPENEM. [Suspect]
     Active Substance: MEROPENEM
     Indication: RESPIRATORY TRACT INFECTION
     Dosage: 1 G, 3X/DAY (EVERY 8 HOURS)
     Route: 042
     Dates: start: 20180402, end: 20180403

REACTIONS (3)
  - Drug interaction [Unknown]
  - Hypocoagulable state [Recovered/Resolved]
  - Haematuria [Recovered/Resolved]

NARRATIVE: CASE EVENT DATE: 20180403
